FAERS Safety Report 25147870 (Version 8)
Quarter: 2025Q4

REPORT INFORMATION
  Report Type: Report from Study
  Country: AU (occurrence: AU)
  Receive Date: 20250402
  Receipt Date: 20251223
  Transmission Date: 20260117
  Serious: Yes (Hospitalization, Other)
  Sender: TAKEDA
  Company Number: AU-TAKEDA-2025TUS018710

PATIENT
  Age: 70 Year
  Sex: Female

DRUGS (4)
  1. TEDUGLUTIDE [Suspect]
     Active Substance: TEDUGLUTIDE
     Indication: Short-bowel syndrome
     Dosage: 0.3 MILLILITER, QD
     Dates: start: 20241127
  2. TEDUGLUTIDE [Suspect]
     Active Substance: TEDUGLUTIDE
  3. TEDUGLUTIDE [Suspect]
     Active Substance: TEDUGLUTIDE
  4. TEDUGLUTIDE [Suspect]
     Active Substance: TEDUGLUTIDE

REACTIONS (14)
  - Abdominal discomfort [Recovered/Resolved]
  - Gastrointestinal stoma output decreased [Recovered/Resolved]
  - Malaise [Recovered/Resolved]
  - Vomiting [Recovered/Resolved]
  - Fistula discharge [Unknown]
  - Pelvic abscess [Unknown]
  - Pyrexia [Recovered/Resolved]
  - Gastrointestinal fistula [Recovered/Resolved]
  - Infection [Recovered/Resolved]
  - Pelvic sepsis [Not Recovered/Not Resolved]
  - Abdominal distension [Recovered/Resolved]
  - Pelvic pain [Not Recovered/Not Resolved]
  - Product availability issue [Unknown]
  - Product use issue [Unknown]

NARRATIVE: CASE EVENT DATE: 20250218
